FAERS Safety Report 5468160-1 (Version None)
Quarter: 2007Q3

REPORT INFORMATION
  Report Type: 
  Country: None (occurrence: None)
  Receive Date: 20070926
  Receipt Date: 20070913
  Transmission Date: 20080115
  Serious: Yes (Hospitalization)
  Sender: FDA-Public Use
  Company Number: US-ELI_LILLY_AND_COMPANY-US200704000637

PATIENT
  Age: 71 Year
  Sex: Female
  Weight: 59.41 kg

DRUGS (7)
  1. NORVASC [Concomitant]
     Dosage: 2.5 MG, DAILY (1/D)
  2. CALCIUM [Concomitant]
  3. ECOTRIN [Concomitant]
  4. MULTI-VITAMIN [Concomitant]
  5. BENICAR [Concomitant]
     Dosage: 20 MG, UNK
     Dates: start: 20060512
  6. FORTEO [Suspect]
     Indication: OSTEOPOROSIS
     Dosage: 20 UG, DAILY (1/D)
     Dates: start: 20060411, end: 20070701
  7. COUMADIN [Concomitant]
     Indication: ATRIAL FIBRILLATION
     Dosage: UNK, UNKNOWN
     Dates: start: 20060801

REACTIONS (9)
  - ABDOMINAL DISTENSION [None]
  - ALOPECIA [None]
  - ATRIAL FIBRILLATION [None]
  - BURNING SENSATION [None]
  - FEELING ABNORMAL [None]
  - HAIR COLOUR CHANGES [None]
  - IRRITABILITY [None]
  - MENTAL IMPAIRMENT [None]
  - PARAESTHESIA [None]
